FAERS Safety Report 17229053 (Version 1)
Quarter: 2020Q1

REPORT INFORMATION
  Report Type: Report from Study
  Country: AU (occurrence: AU)
  Receive Date: 20200103
  Receipt Date: 20200103
  Transmission Date: 20200409
  Serious: No
  Sender: FDA-Public Use
  Company Number: AU-BEH-2019110776

PATIENT
  Age: 60 Year
  Sex: Female
  Weight: 76 kg

DRUGS (1)
  1. HIZENTRA [Suspect]
     Active Substance: HUMAN IMMUNOGLOBULIN G
     Indication: PRIMARY IMMUNODEFICIENCY SYNDROME
     Dosage: 8 GRAM, QW
     Route: 058
     Dates: end: 2019

REACTIONS (2)
  - Drug intolerance [Unknown]
  - Abdominal distension [Unknown]
